FAERS Safety Report 16522927 (Version 2)
Quarter: 2020Q2

REPORT INFORMATION
  Report Type: Spontaneous
  Country: US (occurrence: US)
  Receive Date: 20190702
  Receipt Date: 20200522
  Transmission Date: 20200713
  Serious: No
  Sender: FDA-Public Use
  Company Number: US-TEVA-2019-US-1062957

PATIENT
  Sex: Female

DRUGS (2)
  1. SYNRIBO [Suspect]
     Active Substance: OMACETAXINE MEPESUCCINATE
     Indication: CHRONIC MYELOID LEUKAEMIA
     Dosage: 2MG/0.57ML
     Dates: start: 20190606
  2. SYNRIBO [Suspect]
     Active Substance: OMACETAXINE MEPESUCCINATE
     Dosage: 4 MILLIGRAM DAILY;
     Route: 065
     Dates: start: 20180702

REACTIONS (3)
  - Product storage error [Unknown]
  - Vomiting [Unknown]
  - Pyrexia [Unknown]
